FAERS Safety Report 10022486 (Version 3)
Quarter: 2014Q3

REPORT INFORMATION
  Report Type: Spontaneous
  Country: IT (occurrence: IT)
  Receive Date: 20140319
  Receipt Date: 20140703
  Transmission Date: 20150326
  Serious: Yes (Hospitalization)
  Sender: FDA-Public Use
  Company Number: IT-B.I. PHARMACEUTICALS,INC./RIDGEFIELD-2014-BI-11169IT

PATIENT
  Age: 79 Year
  Sex: Female

DRUGS (8)
  1. SIMVASTATIN. [Concomitant]
     Active Substance: SIMVASTATIN
     Route: 065
  2. METFORMIN DOC GENERICI [Concomitant]
     Route: 065
  3. EUTIROX [Concomitant]
     Active Substance: LEVOTHYROXINE SODIUM
     Route: 065
  4. LASIX [Concomitant]
     Active Substance: FUROSEMIDE
     Route: 065
  5. PRADAXA [Suspect]
     Active Substance: DABIGATRAN ETEXILATE MESYLATE
     Indication: ATRIAL FIBRILLATION
     Route: 048
     Dates: start: 20140118, end: 20140120
  6. HUMULIN NOS [Concomitant]
     Active Substance: INSULIN HUMAN
     Route: 065
  7. MONOKET [Concomitant]
     Active Substance: ISOSORBIDE MONONITRATE
     Route: 065
  8. METOPROLOL EG [Concomitant]
     Route: 065

REACTIONS (5)
  - Bronchospasm [Not Recovered/Not Resolved]
  - Hypertension [Not Recovered/Not Resolved]
  - Asthenia [Not Recovered/Not Resolved]
  - Dyspnoea [Not Recovered/Not Resolved]
  - Malaise [Not Recovered/Not Resolved]

NARRATIVE: CASE EVENT DATE: 20140119
